FAERS Safety Report 26146466 (Version 1)
Quarter: 2025Q4

REPORT INFORMATION
  Report Type: Spontaneous
  Country: US (occurrence: US)
  Receive Date: 20251211
  Receipt Date: 20251211
  Transmission Date: 20260117
  Serious: Yes (Hospitalization)
  Sender: TEVA
  Company Number: US-TEVA-VS-3399907

PATIENT
  Age: 57 Year
  Sex: Male

DRUGS (3)
  1. CLOZAPINE [Suspect]
     Active Substance: CLOZAPINE
     Indication: Schizoaffective disorder
     Dosage: 400MG NIGHTLY
     Route: 065
  2. RISPERIDONE [Suspect]
     Active Substance: RISPERIDONE
     Indication: Schizoaffective disorder
     Route: 065
  3. QUETIAPINE [Suspect]
     Active Substance: QUETIAPINE
     Indication: Schizoaffective disorder
     Route: 065

REACTIONS (8)
  - Drug ineffective [Unknown]
  - Treatment noncompliance [Unknown]
  - Cholinergic syndrome [Unknown]
  - Withdrawal syndrome [Unknown]
  - Confusional state [Unknown]
  - Withdrawal catatonia [Recovered/Resolved]
  - Increased upper airway secretion [Unknown]
  - Aspiration [Unknown]
